FAERS Safety Report 5309364-8 (Version None)
Quarter: 2007Q2

REPORT INFORMATION
  Report Type: 
  Country: None (occurrence: None)
  Receive Date: 20070425
  Receipt Date: 20070425
  Transmission Date: 20071010
  Serious: Yes (Other)
  Sender: FDA-Public Use
  Company Number: None

PATIENT
  Sex: Female
  Weight: 92.9874 kg

DRUGS (2)
  1. ENBREL [Suspect]
     Indication: FIBROMYALGIA
     Dosage: 25MG SQ QOWK SQ.
     Route: 058
     Dates: start: 20060405
  2. ENBREL [Suspect]
     Indication: RHEUMATOID ARTHRITIS
     Dosage: 25MG SQ QOWK SQ.
     Route: 058
     Dates: start: 20060405

REACTIONS (1)
  - CHRONIC MYELOID LEUKAEMIA [None]
